FAERS Safety Report 4273159-7 (Version None)
Quarter: 2004Q1

REPORT INFORMATION
  Report Type: 
  Country: None (occurrence: None)
  Receive Date: 20040116
  Receipt Date: 20040105
  Transmission Date: 20041129
  Serious: Yes (Hospitalization)
  Sender: FDA-Public Use
  Company Number: PHRM2004FR00446

PATIENT
  Age: 87 Year
  Sex: Female
  Weight: 50 kg

DRUGS (10)
  1. TEGRETOL [Suspect]
     Dosage: 400 MG, BID
     Route: 048
  2. KARDEGIC [Concomitant]
     Dosage: 1 DF, QD
     Route: 048
  3. HEMIGOXINE NATIVELLE [Concomitant]
     Dosage: .125 MG, QD
     Route: 048
  4. ALDACTONE [Concomitant]
     Dosage: 50 MG, QD
     Route: 048
  5. PHENOBARBITAL TAB [Concomitant]
     Dosage: 50 MG, QD
     Route: 048
  6. DEROXAT [Concomitant]
     Dosage: 10 MG, QD
     Route: 048
  7. LASILIX [Concomitant]
     Dosage: 40 MG/DAY
     Route: 048
  8. APROVEL [Concomitant]
     Dosage: 150 MG/DAY
     Route: 048
  9. DIHYDROERGOTAMINE [Concomitant]
     Dosage: 1 DF, TID
     Route: 048
  10. MULTIVITAMIN [Concomitant]
     Dosage: 1 DF, BID
     Route: 048

REACTIONS (15)
  - BLOOD BICARBONATE INCREASED [None]
  - CARDIAC MURMUR [None]
  - CLUMSINESS [None]
  - CONSTIPATION [None]
  - DIARRHOEA [None]
  - DIZZINESS [None]
  - DRUG LEVEL INCREASED [None]
  - FALL [None]
  - FEMUR FRACTURE [None]
  - GASTROINTESTINAL DISORDER [None]
  - HAEMATOCRIT DECREASED [None]
  - HAEMOGLOBIN DECREASED [None]
  - LUNG DISORDER [None]
  - PLATELET COUNT DECREASED [None]
  - RED BLOOD CELL COUNT DECREASED [None]
